FAERS Safety Report 21519296 (Version 1)
Quarter: 2022Q4

REPORT INFORMATION
  Report Type: Spontaneous
  Country: US (occurrence: None)
  Receive Date: 20221027
  Receipt Date: 20221027
  Transmission Date: 20230113
  Serious: Yes (Other)
  Sender: FDA-Public Use
  Company Number: None

PATIENT
  Age: 69 Year
  Sex: Female
  Weight: 77.11 kg

DRUGS (1)
  1. ZIPRASIDONE [Suspect]
     Active Substance: ZIPRASIDONE

REACTIONS (5)
  - Musculoskeletal stiffness [None]
  - Pain [None]
  - Back pain [None]
  - Mood altered [None]
  - Asthenia [None]

NARRATIVE: CASE EVENT DATE: 20220901
